FAERS Safety Report 4464912-5 (Version None)
Quarter: 2004Q4

REPORT INFORMATION
  Report Type: 
  Country: None (occurrence: None)
  Receive Date: 20041004
  Receipt Date: 20040216
  Transmission Date: 20050328
  Serious: No
  Sender: FDA-Public Use
  Company Number: 361801

PATIENT
  Age: 67 Year
  Sex: Male

DRUGS (5)
  1. COREG [Suspect]
     Dosage: 6.25MG TWICE PER DAY
     Route: 048
     Dates: start: 20040126, end: 20040213
  2. ADVAIR DISKUS 100/50 [Concomitant]
  3. SINGULAIR [Concomitant]
  4. LIPITOR [Concomitant]
  5. ASPIRIN [Concomitant]

REACTIONS (1)
  - DYSPNOEA [None]
